FAERS Safety Report 9788616 (Version 2)
Quarter: 2014Q3

REPORT INFORMATION
  Report Type: Spontaneous
  Country: US (occurrence: US)
  Receive Date: 20131230
  Receipt Date: 20140820
  Transmission Date: 20150326
  Serious: Yes (Hospitalization, Other)
  Sender: FDA-Public Use
  Company Number: US-009507513-1312USA012335

PATIENT
  Sex: Female
  Weight: 65 kg

DRUGS (1)
  1. NUVARING [Suspect]
     Active Substance: ETHINYL ESTRADIOL\ETONOGESTREL
     Dosage: 0.12-0.15MG/24HR EVERY MONTH
     Route: 067
     Dates: start: 201201, end: 20130815

REACTIONS (6)
  - Deep vein thrombosis [Unknown]
  - Deep vein thrombosis [Not Recovered/Not Resolved]
  - Vena cava filter insertion [Unknown]
  - Pericardial effusion [Unknown]
  - Cardiac disorder [Unknown]
  - Pulmonary embolism [Unknown]

NARRATIVE: CASE EVENT DATE: 20130814
